FAERS Safety Report 5038829-1 (Version None)
Quarter: 2006Q2

REPORT INFORMATION
  Report Type: 
  Country: None (occurrence: None)
  Receive Date: 20060627
  Receipt Date: 20060627
  Transmission Date: 20061013
  Serious: Yes (Hospitalization)
  Sender: FDA-Public Use
  Company Number: None

PATIENT
  Age: 70 Year
  Sex: Male

DRUGS (4)
  1. TRAMADOL HCL [Suspect]
     Indication: OSTEOARTHRITIS
     Dosage: 50 MG PO Q 6H FOR PAIN
     Route: 048
  2. TRAMADOL HCL [Suspect]
     Indication: PAIN
     Dosage: 50 MG PO Q 6H FOR PAIN
     Route: 048
  3. VENLAFAXINE HCL [Suspect]
     Indication: DEPRESSION
     Dosage: 225 MG PO QD
     Route: 048
  4. FLEXERIL [Suspect]
     Indication: OSTEOARTHRITIS

REACTIONS (13)
  - ASTHENIA [None]
  - FALL [None]
  - GAIT DISTURBANCE [None]
  - HEADACHE [None]
  - HYDROCEPHALUS [None]
  - HYPERREFLEXIA [None]
  - MENTAL DISORDER [None]
  - MUSCLE DISORDER [None]
  - MUSCLE TWITCHING [None]
  - PHOTOPHOBIA [None]
  - SEROTONIN SYNDROME [None]
  - TREMOR [None]
  - URINARY TRACT INFECTION [None]
